FAERS Safety Report 23623713 (Version 1)
Quarter: 2024Q1

REPORT INFORMATION
  Report Type: Spontaneous
  Country: DK (occurrence: DK)
  Receive Date: 20240312
  Receipt Date: 20240312
  Transmission Date: 20240410
  Serious: Yes (Hospitalization)
  Sender: FDA-Public Use
  Company Number: None

PATIENT
  Age: 64 Year
  Sex: Female
  Weight: 71 kg

DRUGS (1)
  1. CHLORDIAZEPOXIDE [Suspect]
     Active Substance: CHLORDIAZEPOXIDE
     Indication: Sedative therapy
     Dosage: STRENGTH: UNKNOWN?DOSE AS NEEDED MAX. 8 TIMES A DAY.BETWEEN 23JAN-26JAN2024, 100 MG GIVEN
     Route: 048
     Dates: start: 20240123, end: 20240126

REACTIONS (2)
  - Altered state of consciousness [Recovering/Resolving]
  - Coma [Recovered/Resolved]

NARRATIVE: CASE EVENT DATE: 20240126
